FAERS Safety Report 21943052 (Version 1)
Quarter: 2023Q1

REPORT INFORMATION
  Report Type: Spontaneous
  Country: US (occurrence: US)
  Receive Date: 20230202
  Receipt Date: 20230202
  Transmission Date: 20230418
  Serious: No
  Sender: FDA-Public Use
  Company Number: US-VIIV HEALTHCARE LIMITED-US2023AMR010794

PATIENT

DRUGS (8)
  1. RILPIVIRINE [Suspect]
     Active Substance: RILPIVIRINE
     Indication: Product used for unknown indication
     Dosage: UNK UNK, Z:EVERY 2 MONTH DOSING
     Route: 065
     Dates: start: 202210
  2. RILPIVIRINE [Suspect]
     Active Substance: RILPIVIRINE
     Dosage: UNK UNK, Z:EVERY 2 MONTH DOSING
     Route: 065
     Dates: start: 202211
  3. RILPIVIRINE [Suspect]
     Active Substance: RILPIVIRINE
     Dosage: UNK UNK, Z:EVERY 2 MONTH DOSING
     Route: 065
     Dates: start: 20230106
  4. RILPIVIRINE [Suspect]
     Active Substance: RILPIVIRINE
     Dosage: UNK UNK, Z:EVERY 2 MONTH DOSING
     Route: 065
     Dates: start: 20230117
  5. CABOTEGRAVIR [Suspect]
     Active Substance: CABOTEGRAVIR
     Indication: Product used for unknown indication
     Dosage: UNK UNK, Z:EVERY 2 MONTH DOSING
     Route: 065
     Dates: start: 202210
  6. CABOTEGRAVIR [Suspect]
     Active Substance: CABOTEGRAVIR
     Dosage: UNK UNK, Z:EVERY 2 MONTH DOSING
     Route: 065
     Dates: start: 202211
  7. CABOTEGRAVIR [Suspect]
     Active Substance: CABOTEGRAVIR
     Dosage: UNK UNK, Z:EVERY 2 MONTH DOSING
     Route: 065
     Dates: start: 20230106
  8. CABOTEGRAVIR [Suspect]
     Active Substance: CABOTEGRAVIR
     Dosage: UNK UNK, Z:EVERY 2 MONTH DOSING
     Route: 065
     Dates: start: 20230117

REACTIONS (4)
  - Musculoskeletal pain [Unknown]
  - Dizziness [Unknown]
  - Overdose [Unknown]
  - Inappropriate schedule of product administration [Unknown]
